FAERS Safety Report 6728065-2 (Version None)
Quarter: 2010Q2

REPORT INFORMATION
  Report Type: 
  Country: None (occurrence: None)
  Receive Date: 20100512
  Receipt Date: 20100208
  Transmission Date: 20101027
  Serious: Yes (Death)
  Sender: FDA-Public Use
  Company Number: 1000011711

PATIENT
  Age: 62 Year
  Sex: Female

DRUGS (10)
  1. SAVELLA [Suspect]
     Indication: FIBROMYALGIA
     Dosage: 12.5 MG (12.5 MG,1 IN 1 D), ORAL; 25 MG (12.5 MG,2 IN 1 D),ORAL; 50 MG (25 MG,2 IN 1 D), ORAL; 100
     Route: 048
     Dates: start: 20100118, end: 20100118
  2. SAVELLA [Suspect]
     Indication: FIBROMYALGIA
     Dosage: 12.5 MG (12.5 MG,1 IN 1 D), ORAL; 25 MG (12.5 MG,2 IN 1 D),ORAL; 50 MG (25 MG,2 IN 1 D), ORAL; 100
     Route: 048
     Dates: start: 20100119, end: 20100120
  3. SAVELLA [Suspect]
     Indication: FIBROMYALGIA
     Dosage: 12.5 MG (12.5 MG,1 IN 1 D), ORAL; 25 MG (12.5 MG,2 IN 1 D),ORAL; 50 MG (25 MG,2 IN 1 D), ORAL; 100
     Route: 048
     Dates: start: 20100121, end: 20100124
  4. SAVELLA [Suspect]
     Indication: FIBROMYALGIA
     Dosage: 12.5 MG (12.5 MG,1 IN 1 D), ORAL; 25 MG (12.5 MG,2 IN 1 D),ORAL; 50 MG (25 MG,2 IN 1 D), ORAL; 100
     Route: 048
     Dates: start: 20100125, end: 20100129
  5. LYRICA [Concomitant]
  6. CYMBALTA [Concomitant]
  7. SYNTHROID [Concomitant]
  8. AMITRIPTYLINE [Concomitant]
  9. TRAMADOL HCL [Concomitant]
  10. OMEPRAZOLE [Concomitant]

REACTIONS (1)
  - DEATH [None]
